FAERS Safety Report 5621777-3 (Version None)
Quarter: 2008Q1

REPORT INFORMATION
  Report Type: 
  Country: None (occurrence: None)
  Receive Date: 20080211
  Receipt Date: 20080130
  Transmission Date: 20080703
  Serious: Yes (Other)
  Sender: FDA-Public Use
  Company Number: PHEH2008US00670

PATIENT
  Age: 33 Year
  Sex: Female

DRUGS (8)
  1. TOBRAMYCIN C-TOB+SUSAEINH [Suspect]
     Indication: CYSTIC FIBROSIS
     Dosage: 300 MG, BID
  2. AZITHROMYCIN [Concomitant]
     Indication: ANTIINFLAMMATORY THERAPY
     Dosage: 500 MG, EVERY MON, WED, FRI
     Route: 048
  3. CREON [Concomitant]
     Indication: PANCREATIC INSUFFICIENCY
     Dosage: 20 UNK, 1-2 CAPSULES BEFORE MEALS AND SNACKS
     Route: 048
     Dates: start: 19840101
  4. PULMOZYME [Concomitant]
     Indication: INCREASED BRONCHIAL SECRETION
     Dosage: 2.5 MG, QD
     Dates: start: 19940101
  5. PREDNISONE TAB [Concomitant]
     Indication: FIBROMYALGIA
     Dosage: 7.5 MG, QD
     Route: 048
  6. LANTUS [Concomitant]
     Indication: DIABETES MELLITUS
     Dosage: UNK, BEFORE MEALS AND SNACKS
     Route: 058
  7. NOVOLOG [Concomitant]
     Indication: DIABETES MELLITUS
     Dosage: UNK, BEFORE MEALS AND SNACKS
     Route: 058
  8. RHINOCORT [Concomitant]
     Indication: SINUS DISORDER
     Dosage: UNK, QD

REACTIONS (1)
  - BLOOD GLUCOSE INCREASED [None]
